FAERS Safety Report 7541030-0 (Version None)
Quarter: 2011Q2

REPORT INFORMATION
  Report Type: 
  Country: None (occurrence: None)
  Receive Date: 20110610
  Receipt Date: 20100707
  Transmission Date: 20111010
  Serious: No
  Sender: FDA-Public Use
  Company Number: A0868966A

PATIENT
  Age: 55 Year
  Sex: Male

DRUGS (1)
  1. ALTABAX [Suspect]
     Dosage: 1APP TWICE PER DAY
     Route: 061
     Dates: end: 20100707

REACTIONS (1)
  - DERMATITIS CONTACT [None]
